FAERS Safety Report 13255288 (Version 2)
Quarter: 2017Q2

REPORT INFORMATION
  Report Type: Spontaneous
  Country: US (occurrence: US)
  Receive Date: 20170221
  Receipt Date: 20170512
  Transmission Date: 20170830
  Serious: Yes (Hospitalization)
  Sender: FDA-Public Use
  Company Number: US-JNJFOC-20170123871

PATIENT
  Sex: Male
  Weight: 110.22 kg

DRUGS (4)
  1. INVEGA SUSTENNA [Suspect]
     Active Substance: PALIPERIDONE PALMITATE
     Indication: SCHIZOAFFECTIVE DISORDER BIPOLAR TYPE
     Route: 030
     Dates: start: 201609, end: 20161204
  2. INVEGA SUSTENNA [Suspect]
     Active Substance: PALIPERIDONE PALMITATE
     Indication: SCHIZOAFFECTIVE DISORDER BIPOLAR TYPE
     Route: 030
     Dates: start: 20161204, end: 20170117
  3. QUETIAPINE. [Concomitant]
     Active Substance: QUETIAPINE
     Route: 065
  4. INVEGA SUSTENNA [Suspect]
     Active Substance: PALIPERIDONE PALMITATE
     Indication: SCHIZOAFFECTIVE DISORDER BIPOLAR TYPE
     Route: 030
     Dates: start: 20170117

REACTIONS (4)
  - Delusion [Not Recovered/Not Resolved]
  - Drug dose omission [Unknown]
  - Aggression [Not Recovered/Not Resolved]
  - Hepatic enzyme increased [Unknown]

NARRATIVE: CASE EVENT DATE: 2016
